FAERS Safety Report 16693708 (Version 1)
Quarter: 2019Q3

REPORT INFORMATION
  Report Type: Spontaneous
  Country: US (occurrence: US)
  Receive Date: 20190812
  Receipt Date: 20190812
  Transmission Date: 20191004
  Serious: No
  Sender: FDA-Public Use
  Company Number: US-IBSA PHARMA-TIR-2019-0301

PATIENT
  Sex: Female

DRUGS (3)
  1. TIROSINT [Suspect]
     Active Substance: LEVOTHYROXINE SODIUM
     Indication: AUTOIMMUNE THYROIDITIS
     Dosage: 300MCG DAILY
     Route: 048
     Dates: start: 2018
  2. TIROSINT [Suspect]
     Active Substance: LEVOTHYROXINE SODIUM
     Indication: AUTOIMMUNE THYROIDITIS
     Dosage: 112MCG TWO CAPSULES DAILY IN THE MORNING
     Route: 048
     Dates: start: 2018
  3. TIROSINT [Suspect]
     Active Substance: LEVOTHYROXINE SODIUM
     Indication: AUTOIMMUNE THYROIDITIS
     Dosage: 100MCG TWO CAPSULES DAILY IN THE MORNING
     Route: 048
     Dates: start: 2018

REACTIONS (10)
  - Malaise [Unknown]
  - Mental impairment [Unknown]
  - Inappropriate schedule of product administration [Unknown]
  - Speech disorder [Unknown]
  - Weight decreased [Unknown]
  - Product quality issue [Unknown]
  - Drug ineffective [Unknown]
  - Arthralgia [Unknown]
  - Somnolence [Unknown]
  - Headache [Unknown]
